FAERS Safety Report 6363108-X (Version None)
Quarter: 2009Q3

REPORT INFORMATION
  Report Type: 
  Country: None (occurrence: None)
  Receive Date: 20090919
  Receipt Date: 20090618
  Transmission Date: 20100115
  Serious: No
  Sender: FDA-Public Use
  Company Number: US-ABBOTT-09P-163-0580695-00

PATIENT
  Sex: Male
  Weight: 88.984 kg

DRUGS (5)
  1. HUMIRA [Suspect]
     Indication: RHEUMATOID ARTHRITIS
     Dates: start: 20090617
  2. PREDNISONE [Concomitant]
     Indication: DRUG USE FOR UNKNOWN INDICATION
  3. DARVOCET [Concomitant]
     Indication: DRUG USE FOR UNKNOWN INDICATION
  4. TYLENOL (CAPLET) [Concomitant]
     Indication: DRUG USE FOR UNKNOWN INDICATION
  5. ALCOHOL [Concomitant]
     Indication: DRUG USE FOR UNKNOWN INDICATION
     Dates: start: 20090617

REACTIONS (8)
  - CHEST DISCOMFORT [None]
  - CHILLS [None]
  - DRY MOUTH [None]
  - FEAR [None]
  - FEELING ABNORMAL [None]
  - NERVOUSNESS [None]
  - NIGHT SWEATS [None]
  - RESTLESSNESS [None]
